FAERS Safety Report 9780765 (Version 2)
Quarter: 2014Q1

REPORT INFORMATION
  Report Type: Report from Study
  Country: JP (occurrence: JP)
  Receive Date: 20131224
  Receipt Date: 20140102
  Transmission Date: 20141002
  Serious: Yes (Death)
  Sender: FDA-Public Use
  Company Number: JP-UCBSA-106693

PATIENT
  Age: 82 Year
  Sex: Male

DRUGS (2)
  1. E KEPPRA [Suspect]
     Indication: PARTIAL SEIZURES WITH SECONDARY GENERALISATION
     Route: 048
     Dates: start: 20120915, end: 20121210
  2. DEPAKENE [Concomitant]
     Route: 048
     Dates: start: 20120914, end: 20121210

REACTIONS (1)
  - Brain neoplasm [Fatal]
